FAERS Safety Report 14187994 (Version 2)
Quarter: 2017Q4

REPORT INFORMATION
  Report Type: Spontaneous
  Country: US (occurrence: US)
  Receive Date: 20171114
  Receipt Date: 20171114
  Transmission Date: 20180321
  Serious: Yes (Other)
  Sender: FDA-Public Use
  Company Number: US-CELGENEUS-USA-20171100694

PATIENT
  Age: 74 Year
  Sex: Female

DRUGS (1)
  1. THALOMID [Suspect]
     Active Substance: THALIDOMIDE
     Indication: PLASMA CELL MYELOMA
     Dosage: 50 MILLIGRAM
     Route: 048
     Dates: start: 20150214, end: 20150521

REACTIONS (4)
  - Weight increased [Unknown]
  - Ascites [Unknown]
  - Dyspnoea exertional [Unknown]
  - Portal vein thrombosis [Unknown]

NARRATIVE: CASE EVENT DATE: 20150521
